FAERS Safety Report 4422664-9 (Version None)
Quarter: 2004Q3

REPORT INFORMATION
  Report Type: 
  Country: None (occurrence: None)
  Receive Date: 20040809
  Receipt Date: 20040722
  Transmission Date: 20050211
  Serious: Yes (Death, Hospitalization, Other)
  Sender: FDA-Public Use
  Company Number: 700796

PATIENT
  Age: 68 Year
  Sex: Female
  Weight: 54.4316 kg

DRUGS (17)
  1. AMEVIVE [Suspect]
     Indication: PSORIASIS
     Dosage: 15 MG NA IM
     Route: 030
     Dates: start: 20030401, end: 20030101
  2. AMEVIVE [Suspect]
     Indication: PSORIASIS
     Dosage: 15 MG NA IM
     Route: 030
     Dates: start: 20031201, end: 20040301
  3. PRILOSEC [Concomitant]
  4. ATIVAN [Concomitant]
  5. TIAZAC [Concomitant]
  6. AVAPRO [Concomitant]
  7. DETROL [Concomitant]
  8. ACCOLATE [Concomitant]
  9. ZOCOR [Concomitant]
  10. SYNTHROID [Concomitant]
  11. PLAVIX [Concomitant]
  12. ISOSORBIDE DINITRATE [Concomitant]
  13. PRED FORTE [Concomitant]
  14. CLOBETASOL [Concomitant]
  15. ASPIRIN [Concomitant]
  16. IRON SULFATETHIAMIN COMPOUND TAB [Concomitant]
  17. VITAMIN E [Concomitant]

REACTIONS (7)
  - ANAEMIA [None]
  - CEREBROVASCULAR ACCIDENT [None]
  - COLON CANCER [None]
  - DEHYDRATION [None]
  - PANCREATIC DISORDER [None]
  - RENAL FAILURE [None]
  - SLEEP DISORDER [None]
